FAERS Safety Report 5074326-5 (Version None)
Quarter: 2006Q3

REPORT INFORMATION
  Report Type: 
  Country: None (occurrence: None)
  Receive Date: 20060803
  Receipt Date: 20060720
  Transmission Date: 20061208
  Serious: Yes (Other)
  Sender: FDA-Public Use
  Company Number: 2006BH012238

PATIENT
  Age: 13 Year
  Sex: Female

DRUGS (11)
  1. DEXAMETHASONE TAB [Suspect]
     Indication: CHEMOTHERAPY
  2. VINCRISTINE SULFATE [Suspect]
     Indication: CHEMOTHERAPY
  3. CYCLOPHOSPHAMIDE [Suspect]
     Indication: CHEMOTHERAPY
     Dosage: 3000 MG/M**2;
  4. METHOTREXATE [Suspect]
     Indication: CHEMOTHERAPY
     Dosage: 3300 MG/M**2;
  5. L-ASPARGINASE [Suspect]
     Indication: CHEMOTHERAPY
     Dosage: 94000
  6. PREDNISONE TAB [Suspect]
     Indication: CHEMOTHERAPY
  7. DAUNORUBICIN HCL [Suspect]
     Indication: CHEMOTHERAPY
  8. ADRIAMYCIN PFS [Suspect]
     Indication: CHEMOTHERAPY
     Dosage: 200 MG/M**2;
  9. CYTARABINE [Suspect]
     Indication: CHEMOTHERAPY
     Dosage: 1800 MG/M**2;
  10. MERCAPTOPURINE (MERCAPTOPURINE) [Suspect]
     Indication: CHEMOTHERAPY
  11. THIOGUANINE [Suspect]
     Indication: CHEMOTHERAPY

REACTIONS (1)
  - IDIOPATHIC THROMBOCYTOPENIC PURPURA [None]
